FAERS Safety Report 16312934 (Version 1)
Quarter: 2019Q2

REPORT INFORMATION
  Report Type: Report from Study
  Country: NL (occurrence: NL)
  Receive Date: 20190515
  Receipt Date: 20190515
  Transmission Date: 20190711
  Serious: Yes (Other)
  Sender: FDA-Public Use
  Company Number: NL-ACCORD-127400

PATIENT
  Age: 59 Year
  Sex: Female

DRUGS (6)
  1. METFORMIN [Concomitant]
     Active Substance: METFORMIN HYDROCHLORIDE
     Dosage: 1000MG, 2X/D
  2. METHOTREXATE. [Suspect]
     Active Substance: METHOTREXATE
     Indication: PSORIATIC ARTHROPATHY
     Dosage: 5MG, 1X / W
     Dates: start: 20160706, end: 20181123
  3. OXAZEPAM. [Concomitant]
     Active Substance: OXAZEPAM
     Dosage: MG, ZN
  4. FOLIUMZUUR [Concomitant]
     Active Substance: FOLIC ACID
     Dosage: 5MG, VOLGENS SCHEMA
     Dates: start: 20160706, end: 20181123
  5. BISOPROLOL [Concomitant]
     Active Substance: BISOPROLOL
     Dosage: MG, VOLGENS SCHEMA
  6. HYDROCHLOROTHIAZIDE. [Concomitant]
     Active Substance: HYDROCHLOROTHIAZIDE
     Dosage: MG, VOLGENS SCHEMA

REACTIONS (2)
  - Liver function test abnormal [Unknown]
  - Portal vein thrombosis [Unknown]

NARRATIVE: CASE EVENT DATE: 20180419
